FAERS Safety Report 4511386-1 (Version None)
Quarter: 2004Q4

REPORT INFORMATION
  Report Type: 
  Country: None (occurrence: None)
  Receive Date: 20041123
  Receipt Date: 20041123
  Transmission Date: 20050328
  Serious: Yes (Hospitalization)
  Sender: FDA-Public Use
  Company Number: None

PATIENT
  Age: 9 Year
  Sex: Female

DRUGS (9)
  1. NEORAL [Suspect]
     Indication: IMMUNOSUPPRESSION
     Dosage: 225 MG BID ORAL
     Route: 048
     Dates: start: 20040310, end: 20040607
  2. NEORAL [Suspect]
     Indication: LIVER TRANSPLANT
     Dosage: 225 MG BID ORAL
     Route: 048
     Dates: start: 20040310, end: 20040607
  3. ACYCLOVIR [Concomitant]
  4. LANSOPRAZOLE [Concomitant]
  5. ASPIRIN [Concomitant]
  6. SEPTRA [Concomitant]
  7. NYSTATIN [Concomitant]
  8. MULTI-VITAMINS [Concomitant]
  9. AMLODIPINE [Concomitant]

REACTIONS (2)
  - COMPLICATIONS OF TRANSPLANT SURGERY [None]
  - HIRSUTISM [None]
